FAERS Safety Report 5867058-4 (Version None)
Quarter: 2008Q3

REPORT INFORMATION
  Report Type: 
  Country: None (occurrence: None)
  Receive Date: 20080902
  Receipt Date: 20080826
  Transmission Date: 20090109
  Serious: Yes (Other)
  Sender: FDA-Public Use
  Company Number: B0532118A

PATIENT
  Age: 60 Year
  Sex: Female

DRUGS (11)
  1. ZEFIX [Suspect]
     Indication: HEPATITIS B
     Dosage: 100MG PER DAY
     Route: 048
     Dates: start: 20040306
  2. ONON [Suspect]
     Indication: ASTHMA
     Dosage: 225MG TWICE PER DAY
     Route: 048
     Dates: start: 20020306
  3. UNKNOWN [Suspect]
     Indication: ASTHMA
     Dosage: 100MG TWICE PER DAY
     Route: 048
     Dates: start: 19970213
  4. ACECOL [Suspect]
     Indication: HYPERTENSION
     Dosage: 4MG PER DAY
     Route: 048
     Dates: start: 20020306
  5. ZYRTEC [Suspect]
     Indication: ASTHMA
     Dosage: 10MG PER DAY
     Route: 048
     Dates: start: 20080417
  6. UNKNOWN DRUG [Concomitant]
     Route: 048
  7. UNKNOWN DRUG [Concomitant]
     Route: 048
  8. UNKNOWN DRUG [Concomitant]
     Route: 048
  9. MECOBALAMIN [Concomitant]
     Route: 065
  10. ASPARA K [Concomitant]
     Route: 065
  11. ADALAT [Concomitant]
     Route: 048

REACTIONS (3)
  - PLATELET COUNT DECREASED [None]
  - PURPURA [None]
  - THROMBOCYTOPENIA [None]
